FAERS Safety Report 8427856-X (Version None)
Quarter: 2012Q2

REPORT INFORMATION
  Report Type: 
  Country: None (occurrence: None)
  Receive Date: 20120611
  Receipt Date: 20120531
  Transmission Date: 20120825
  Serious: Yes (Other)
  Sender: FDA-Public Use
  Company Number: US-ASTRAZENECA-2008UW24919

PATIENT
  Age: 79 Year
  Sex: Female
  Weight: 59 kg

DRUGS (9)
  1. ASTELIN [Concomitant]
  2. OMEGA-3 ACID [Concomitant]
  3. RHINOCORT [Concomitant]
     Route: 045
  4. CALCIUM [Concomitant]
  5. VITAMIN TAB [Concomitant]
  6. FOLIC ACID [Concomitant]
  7. SYNTHROID [Concomitant]
  8. ARIMIDEX [Suspect]
     Indication: BREAST CANCER FEMALE
     Route: 048
     Dates: start: 20071201
  9. ARIMIDEX [Suspect]
     Dosage: GENERIC
     Route: 048

REACTIONS (4)
  - PHARYNGEAL NEOPLASM [None]
  - RENAL IMPAIRMENT [None]
  - MUSCULOSKELETAL PAIN [None]
  - BACK PAIN [None]
